FAERS Safety Report 19408738 (Version 1)
Quarter: 2021Q2

REPORT INFORMATION
  Report Type: Spontaneous
  Country: DE (occurrence: DE)
  Receive Date: 20210613
  Receipt Date: 20210613
  Transmission Date: 20210717
  Serious: Yes (Other)
  Sender: FDA-Public Use
  Company Number: NVSC2021DE127199

PATIENT
  Age: 77 Year
  Sex: Female
  Weight: 66 kg

DRUGS (38)
  1. OXALIPLATIN. [Suspect]
     Active Substance: OXALIPLATIN
     Indication: COLORECTAL CANCER METASTATIC
     Dosage: 115 MG
     Route: 065
     Dates: start: 20200902
  2. FOLINIC ACID [Suspect]
     Active Substance: LEUCOVORIN
     Indication: COLORECTAL CANCER METASTATIC
     Dosage: 680 MG
     Route: 065
     Dates: start: 20200902
  3. SIMVASTATIN. [Concomitant]
     Active Substance: SIMVASTATIN
     Indication: METABOLIC DISORDER
     Dosage: 20 MG, QD
     Route: 048
  4. STANGYL [Concomitant]
     Active Substance: TRIMIPRAMINE MALEATE
     Indication: DEPRESSION
     Dosage: 100 MG, QD (50 MILLIGRAM, BID)
     Route: 048
  5. METOPROLOL. [Concomitant]
     Active Substance: METOPROLOL
     Indication: HYPERTENSION
     Dosage: 50 MG, QD
     Route: 048
     Dates: start: 2020
  6. MINOCYCLINE [Concomitant]
     Active Substance: MINOCYCLINE HYDROCHLORIDE
     Indication: PRODUCT USED FOR UNKNOWN INDICATION
     Dosage: 100 MG, QD
     Route: 048
     Dates: start: 20200902
  7. BRICANYL [Concomitant]
     Active Substance: TERBUTALINE SULFATE
     Indication: BRONCHOSPASM
     Dosage: 0.5 MG, QD
     Route: 058
     Dates: start: 20201028, end: 20201028
  8. ALPHA LIPON ARISTO [Concomitant]
     Active Substance: THIOCTIC ACID
     Indication: TREMOR
     Dosage: 600 MG
     Route: 048
     Dates: start: 20210210
  9. AKYNZEO [Concomitant]
     Active Substance: NETUPITANT\PALONOSETRON HYDROCHLORIDE
     Indication: PRODUCT USED FOR UNKNOWN INDICATION
     Dosage: 300 MG, CYCLIC
     Route: 048
     Dates: start: 20200902
  10. PANTOZOL [Concomitant]
     Active Substance: PANTOPRAZOLE SODIUM
     Indication: CHRONIC GASTRITIS
     Dosage: 40 MG, QD
     Route: 048
     Dates: start: 20200910
  11. MOVICOL [Concomitant]
     Active Substance: POLYETHYLENE GLYCOL 3350\POTASSIUM CHLORIDE\SODIUM BICARBONATE\SODIUM CHLORIDE
     Indication: PRODUCT USED FOR UNKNOWN INDICATION
     Dosage: 13 G (AS NECESSARY)
     Route: 048
     Dates: start: 20210120
  12. VERGENTAN [Concomitant]
     Active Substance: ALIZAPRIDE HYDROCHLORIDE
     Indication: NAUSEA
     Dosage: 50 MG (AS NECESSARY)
     Route: 048
     Dates: start: 20200910
  13. AMLODIPIN [Concomitant]
     Active Substance: AMLODIPINE BESYLATE
     Indication: HYPERTENSION
     Dosage: 2.5 MG, QD
     Route: 048
     Dates: start: 2020, end: 20210118
  14. NOVAMIN [Concomitant]
     Indication: PAIN
     Dosage: 2000 MG, QD
     Route: 048
     Dates: start: 2020
  15. FLUOROURACIL. [Suspect]
     Active Substance: FLUOROURACIL
     Dosage: 3840 MG
     Route: 042
     Dates: start: 20210324
  16. FOLINIC ACID [Suspect]
     Active Substance: LEUCOVORIN
     Dosage: 640 MG
     Route: 065
     Dates: start: 20210324
  17. JONOSTERIL [Concomitant]
     Indication: BLOOD CREATININE INCREASED
     Dosage: 1 UNK, QD (500?1500 MILLILITER, QD)
     Route: 042
     Dates: start: 20201104
  18. IRINOTECAN [Concomitant]
     Active Substance: IRINOTECAN
     Indication: PRODUCT USED FOR UNKNOWN INDICATION
     Dosage: UNK (288?300 MILLIGRAM, CYCLICAL)
     Route: 042
     Dates: start: 20201209
  19. CALCIGEN D3 [Concomitant]
     Indication: HYPOCALCAEMIA
     Dosage: 2500 MG, QD (1250 MILLIGRAM, BID)
     Route: 048
     Dates: start: 20201123
  20. VECTIBIX [Suspect]
     Active Substance: PANITUMUMAB
     Dosage: 360 MG
     Route: 042
     Dates: start: 20210324
  21. CALCIUM [Concomitant]
     Active Substance: CALCIUM
     Indication: HYPOCALCAEMIA
     Dosage: 100 MG, QD
     Route: 048
     Dates: start: 20201118
  22. LOPERAMID [Concomitant]
     Active Substance: LOPERAMIDE
     Indication: DIARRHOEA
     Dosage: 1.86 MG (AS NECESSARY)
     Route: 048
     Dates: start: 20200903
  23. ONDANSETRON [Concomitant]
     Active Substance: ONDANSETRON
     Indication: NAUSEA
     Dosage: 8 MG, QD
     Route: 042
     Dates: start: 20201111
  24. MCP [Concomitant]
     Active Substance: METOCLOPRAMIDE HYDROCHLORIDE
     Indication: NAUSEA
     Dosage: 10 MG (AS NECESSARY)
     Route: 048
     Dates: start: 20200902
  25. CEFPODOXIME [Concomitant]
     Active Substance: CEFPODOXIME
     Indication: C-REACTIVE PROTEIN INCREASED
     Dosage: 400 MG, QD (200 MILLIGRAM, BID)
     Route: 048
     Dates: start: 20201112, end: 20201117
  26. DEXAMETHASON [Concomitant]
     Active Substance: DEXAMETHASONE
     Indication: PRODUCT USED FOR UNKNOWN INDICATION
     Dosage: 8 MG (CYCLICAL)
     Route: 042
     Dates: start: 20200902
  27. FLUOROURACIL. [Suspect]
     Active Substance: FLUOROURACIL
     Indication: COLORECTAL CANCER METASTATIC
     Dosage: 4080 MG
     Route: 042
     Dates: start: 20200902
  28. ATROPIN [Concomitant]
     Active Substance: ATROPINE
     Indication: PRODUCT USED FOR UNKNOWN INDICATION
     Dosage: 0.25 MG (CYCLICAL)
     Route: 058
     Dates: start: 20201209
  29. LAXOBERAL [Concomitant]
     Active Substance: SODIUM PICOSULFATE
     Indication: CONSTIPATION
     Dosage: UNK (15 DROP, AS NECESSARY)
     Route: 048
     Dates: start: 20210120
  30. OXALIPLATIN. [Suspect]
     Active Substance: OXALIPLATIN
     Dosage: 144 MG
     Route: 065
     Dates: start: 20200916
  31. VECTIBIX [Suspect]
     Active Substance: PANITUMUMAB
     Indication: COLORECTAL CANCER METASTATIC
     Dosage: 400 MG
     Route: 042
     Dates: start: 20200902
  32. UNACID [Concomitant]
     Indication: INFECTION
     Dosage: 3 G, QD
     Route: 042
     Dates: start: 20210113, end: 20210115
  33. RIOPAN [Concomitant]
     Indication: ABDOMINAL PAIN UPPER
     Dosage: 10 ML (AS NECESSARY)
     Route: 048
     Dates: start: 20201014
  34. PREDNISOLON [Concomitant]
     Active Substance: PREDNISOLONE
     Indication: BRONCHOSPASM
     Dosage: 200 MG, QD
     Route: 042
     Dates: start: 20201028, end: 20201028
  35. POTASSIUM [Concomitant]
     Active Substance: POTASSIUM
     Indication: HYPOKALAEMIA
     Dosage: UNK (9999 UNK)
     Route: 065
     Dates: start: 20210113, end: 20210118
  36. MAGNETRANS FORTE [Concomitant]
     Active Substance: MAGNESIUM OXIDE
     Indication: HYPOMAGNESAEMIA
     Dosage: 300 MG, QD (150 MILLIGRAM, BID)
     Route: 048
     Dates: start: 20201118
  37. KALIUM [Concomitant]
     Active Substance: POTASSIUM CHLORIDE
     Indication: HYPOKALAEMIA
     Dosage: 20 ML (AS NECESSARY)
     Route: 042
     Dates: start: 20201112, end: 20201118
  38. FORTIMEL COMPACT [Concomitant]
     Indication: WEIGHT DECREASED
     Dosage: 125 ML (AS NECESSARY)
     Route: 048
     Dates: start: 20210120

REACTIONS (1)
  - Cachexia [Not Recovered/Not Resolved]

NARRATIVE: CASE EVENT DATE: 20210505
